FAERS Safety Report 10161207 (Version 2)
Quarter: 2014Q2

REPORT INFORMATION
  Report Type: Spontaneous
  Country: CA (occurrence: CA)
  Receive Date: 20140508
  Receipt Date: 20140523
  Transmission Date: 20141212
  Serious: Yes (Other)
  Sender: FDA-Public Use
  Company Number: CA-BIOMARINAP-CA-2014-103140

PATIENT
  Sex: Female
  Weight: 63 kg

DRUGS (1)
  1. KUVAN [Suspect]
     Indication: PHENYLKETONURIA
     Dosage: 1200 MG, QD
     Route: 048
     Dates: start: 20130125

REACTIONS (1)
  - Renal cyst [Unknown]
